FAERS Safety Report 9561304 (Version 1)
Quarter: 2013Q3

REPORT INFORMATION
  Report Type: Spontaneous
  Country: US (occurrence: US)
  Receive Date: 20130927
  Receipt Date: 20130927
  Transmission Date: 20140515
  Serious: No
  Sender: FDA-Public Use
  Company Number: US-BIOGENIDEC-2013BI057926

PATIENT
  Age: 53 Year
  Sex: Female

DRUGS (4)
  1. TECFIDERA [Suspect]
     Indication: MULTIPLE SCLEROSIS
     Route: 048
  2. TECFIDERA [Suspect]
     Indication: MULTIPLE SCLEROSIS
     Route: 048
  3. COPAXONE [Concomitant]
  4. REBIF [Concomitant]

REACTIONS (3)
  - Back pain [Recovered/Resolved]
  - Vulvovaginal pain [Recovered/Resolved]
  - Burning sensation [Recovered/Resolved]
